FAERS Safety Report 8622165 (Version 5)
Quarter: 2012Q4

REPORT INFORMATION
  Report Type: Report from Study
  Country: NL (occurrence: NL)
  Receive Date: 20120619
  Receipt Date: 20121105
  Transmission Date: 20130627
  Serious: Yes (Hospitalization)
  Sender: FDA-Public Use
  Company Number: NL-ROCHE-1075253

PATIENT
  Age: 67 Year
  Sex: Male
  Weight: 88.5 kg

DRUGS (14)
  1. RITUXIMAB [Suspect]
     Indication: B-CELL LYMPHOMA
     Dosage: date of last dose prior to sae: 16/May/2012
     Route: 042
     Dates: start: 20120516
  2. PEGFILGRASTIM [Suspect]
     Indication: B-CELL LYMPHOMA
     Dosage: date of last dose prior to sae: 17/May/2012
     Route: 058
     Dates: start: 20120517
  3. PREDNISONE [Suspect]
     Indication: B-CELL LYMPHOMA
     Dosage: date of last dose prior to sae: 20/May/2012
     Route: 048
     Dates: start: 20120516
  4. VINCRISTINE [Suspect]
     Indication: B-CELL LYMPHOMA
     Dosage: date of last dose prior to sae: 16/May/2012
     Route: 042
     Dates: start: 20120516
  5. DOXORUBICIN [Suspect]
     Indication: B-CELL LYMPHOMA
     Dosage: date of last dose prior to sae: 16/May/2012
     Route: 042
     Dates: start: 20120516
  6. CYCLOPHOSPHAMIDE [Suspect]
     Indication: B-CELL LYMPHOMA
     Dosage: date of last dose prior to sae: 16/May/2012
     Route: 042
     Dates: start: 20120516
  7. ACETYLDIHYDROCODEINE HYDROCHLORIDE [Concomitant]
     Indication: PRODUCT USED FOR UNKNOWN INDICATION
     Dosage: date of last dose prior to sae: 20/Jun/2012
     Route: 048
     Dates: start: 20000318, end: 20120601
  8. FUROSEMIDE [Concomitant]
     Indication: HYPERTENSION
     Route: 048
     Dates: start: 20120218, end: 20120601
  9. LIPITOR [Concomitant]
     Indication: HYPERCHOLESTEROLAEMIA
     Route: 048
     Dates: start: 20000318, end: 20120601
  10. METOPROLOL [Concomitant]
     Indication: HYPERTENSION
     Route: 048
     Dates: start: 20120223, end: 20120601
  11. OXYCONTIN [Concomitant]
     Indication: PAIN
     Route: 048
     Dates: start: 20120223, end: 20120601
  12. TAMSULOSIN HYDROCHLORIDE [Concomitant]
     Indication: PROSTATIC DISORDER
     Route: 048
     Dates: start: 20120206, end: 20120601
  13. FORLAX (NETHERLANDS) [Concomitant]
     Indication: CONSTIPATION
     Route: 048
     Dates: start: 20120209, end: 20120601
  14. EXFORGE [Concomitant]
     Indication: HYPERTENSION
     Dosage: 5/80mg
     Route: 048
     Dates: start: 20120209, end: 20120601

REACTIONS (1)
  - Deep vein thrombosis [Recovered/Resolved]
